FAERS Safety Report 24950258 (Version 1)
Quarter: 2025Q1

REPORT INFORMATION
  Report Type: Spontaneous
  Country: JP (occurrence: JP)
  Receive Date: 20250210
  Receipt Date: 20250210
  Transmission Date: 20250409
  Serious: Yes (Other)
  Sender: SANDOZ
  Company Number: JP-SANDOZ-SDZ2025JP006141

PATIENT
  Age: 16 Year
  Sex: Male
  Weight: 60 kg

DRUGS (6)
  1. SOMATROPIN [Suspect]
     Active Substance: SOMATROPIN
     Indication: Growth retardation
     Route: 058
  2. LEUPROLIDE ACETATE [Concomitant]
     Active Substance: LEUPROLIDE ACETATE
     Indication: Growth retardation
     Route: 058
  3. METHENOLONE ACETATE [Concomitant]
     Active Substance: METHENOLONE ACETATE
     Indication: Growth retardation
     Route: 048
  4. METHENOLONE ACETATE [Concomitant]
     Active Substance: METHENOLONE ACETATE
     Route: 048
  5. METHENOLONE ACETATE [Concomitant]
     Active Substance: METHENOLONE ACETATE
     Route: 048
  6. METHENOLONE ACETATE [Concomitant]
     Active Substance: METHENOLONE ACETATE
     Route: 048

REACTIONS (2)
  - Epiphysiolysis [Recovered/Resolved]
  - Product use in unapproved indication [Unknown]
